FAERS Safety Report 9686355 (Version 1)
Quarter: 2013Q4

REPORT INFORMATION
  Report Type: Spontaneous
  Country: US (occurrence: US)
  Receive Date: 20131113
  Receipt Date: 20131113
  Transmission Date: 20140711
  Serious: Yes (Hospitalization, Other)
  Sender: FDA-Public Use
  Company Number: US-ELI_LILLY_AND_COMPANY-US201311000800

PATIENT
  Age: 49 Year
  Sex: Female

DRUGS (2)
  1. CYMBALTA [Suspect]
     Indication: ANXIETY
     Dosage: 60 MG, UNKNOWN
     Route: 065
     Dates: start: 2011, end: 201309
  2. CYMBALTA [Suspect]
     Indication: PAIN

REACTIONS (10)
  - Muscular weakness [Unknown]
  - Fall [Unknown]
  - Rotator cuff syndrome [Unknown]
  - Upper limb fracture [Unknown]
  - Cyst [Unknown]
  - Abdominal pain upper [Unknown]
  - Pain [Unknown]
  - Headache [Unknown]
  - Diarrhoea [Unknown]
  - Drug withdrawal syndrome [Unknown]
